FAERS Safety Report 8045169-5 (Version None)
Quarter: 2012Q1

REPORT INFORMATION
  Report Type: 
  Country: None (occurrence: None)
  Receive Date: 20120113
  Receipt Date: 20111227
  Transmission Date: 20120608
  Serious: Yes (Hospitalization)
  Sender: FDA-Public Use
  Company Number: DE-ASTRAZENECA-2011SE61139

PATIENT
  Age: 18749 Day
  Sex: Female

DRUGS (2)
  1. SEROQUEL XR [Suspect]
     Indication: DEPRESSION
     Route: 048
     Dates: start: 20110429, end: 20110926
  2. SEROQUEL XR [Suspect]
     Dosage: 6000 MG ONCE/SINGLE ADMINISTRATION
     Route: 048
     Dates: start: 20110925, end: 20110925

REACTIONS (3)
  - OVERDOSE [None]
  - SUICIDE ATTEMPT [None]
  - DELIRIUM [None]
